FAERS Safety Report 9798565 (Version 1)
Quarter: 2013Q4

REPORT INFORMATION
  Report Type: Spontaneous
  Country: RO (occurrence: None)
  Receive Date: 20131230
  Receipt Date: 20131230
  Transmission Date: 20140711
  Serious: Yes (Hospitalization)
  Sender: FDA-Public Use
  Company Number: SYM-2013-14370

PATIENT
  Age: 24 Year
  Sex: Male

DRUGS (2)
  1. VIRAZOLE [Suspect]
     Indication: HEPATITIS
  2. PEGINTERFERON ALPHA 2A (PEGINTERFERON ALFA-2A) (PEGINTERFERON ALFA-2A) [Suspect]
     Indication: HEPATITIS

REACTIONS (6)
  - Blood thyroid stimulating hormone increased [None]
  - Anaemia [None]
  - Leukopenia [None]
  - Insulin resistance [None]
  - Type 1 diabetes mellitus [None]
  - Free thyroxine index decreased [None]
